FAERS Safety Report 22327435 (Version 1)
Quarter: 2023Q2

REPORT INFORMATION
  Report Type: Spontaneous
  Country: US (occurrence: US)
  Receive Date: 20230516
  Receipt Date: 20230516
  Transmission Date: 20230721
  Serious: No
  Sender: FDA-Public Use
  Company Number: US-RADIUS HEALTH INC.-2023US000258

PATIENT
  Age: 59 Year
  Sex: Female

DRUGS (4)
  1. TYMLOS [Suspect]
     Active Substance: ABALOPARATIDE
     Indication: Product used for unknown indication
     Dosage: 80 MICROGRAM, QD
     Route: 058
     Dates: start: 20230113
  2. TYMLOS [Suspect]
     Active Substance: ABALOPARATIDE
     Dosage: 40 MCG DAILY FOR 2 DAYS
     Dates: start: 202301
  3. TYMLOS [Suspect]
     Active Substance: ABALOPARATIDE
     Dosage: 60MCG DAILY FOR 2 DAYS
  4. TYMLOS [Suspect]
     Active Substance: ABALOPARATIDE
     Dosage: 80MCG DAILY

REACTIONS (5)
  - Chest pain [Unknown]
  - Laryngitis [Not Recovered/Not Resolved]
  - Palpitations [Unknown]
  - Headache [Unknown]
  - Intentional product misuse [Unknown]

NARRATIVE: CASE EVENT DATE: 20230101
